FAERS Safety Report 6580062-6 (Version None)
Quarter: 2010Q1

REPORT INFORMATION
  Report Type: 
  Country: None (occurrence: None)
  Receive Date: 20100212
  Receipt Date: 20100203
  Transmission Date: 20100710
  Serious: Yes (Death)
  Sender: FDA-Public Use
  Company Number: BE-JNJCH-2010003747

PATIENT
  Age: 73 Year
  Sex: Female

DRUGS (19)
  1. CETIRIZINE HYDROCHLORIDE [Suspect]
     Indication: DRUG USE FOR UNKNOWN INDICATION
     Dosage: TEXT:10 MG
     Route: 065
  2. FOLIC ACID [Suspect]
     Indication: DRUG USE FOR UNKNOWN INDICATION
     Dosage: TEXT:5 MG
     Route: 065
  3. FUROSEMIDE [Suspect]
     Indication: DRUG USE FOR UNKNOWN INDICATION
     Dosage: TEXT:40 MG
     Route: 065
     Dates: start: 20010101, end: 20070401
  4. FUROSEMIDE [Suspect]
     Dosage: TEXT:125 MG
     Route: 065
  5. HYDROXYUREA [Suspect]
     Indication: THROMBOCYTOSIS
     Dosage: TEXT:1 G
     Route: 065
     Dates: start: 20010101, end: 20070201
  6. ANAGRELIDE HCL [Suspect]
     Indication: THROMBOCYTOSIS
     Dosage: TEXT:0.5 MG
     Route: 065
  7. ANAGRELIDE HCL [Suspect]
     Dosage: TEXT:2 MG
     Route: 065
  8. ANAGRELIDE HCL [Suspect]
     Dosage: TEXT:2.5 MG
     Route: 065
  9. ASPIRIN [Suspect]
     Indication: DRUG USE FOR UNKNOWN INDICATION
     Dosage: TEXT:80 MG
     Route: 065
  10. CALCIUM CARBONATE [Suspect]
     Indication: DRUG USE FOR UNKNOWN INDICATION
     Dosage: TEXT:1 G
     Route: 065
     Dates: start: 20010101, end: 20070201
  11. CALCIUM CARBONATE [Suspect]
     Dosage: TEXT:2 G
     Route: 065
  12. PRAVASTATIN [Suspect]
     Indication: DRUG USE FOR UNKNOWN INDICATION
     Dosage: TEXT:40 MG
     Route: 065
  13. EPOGEN [Suspect]
     Indication: ANAEMIA
     Dosage: TEXT:10000U ONCE MONTHLY
     Route: 065
  14. VITAMIN B COMPLEX CAP [Suspect]
     Indication: DRUG USE FOR UNKNOWN INDICATION
     Dosage: TEXT:1 A DAY
     Route: 048
     Dates: start: 20010101, end: 20070201
  15. VITAMIN B COMPLEX CAP [Suspect]
     Dosage: TEXT:3 TABLETS WEEKLY
     Route: 048
  16. IRON [Suspect]
     Indication: DRUG USE FOR UNKNOWN INDICATION
     Dosage: TEXT:105 MG
     Route: 048
     Dates: start: 20010101, end: 20070201
  17. IRON [Suspect]
     Dosage: TEXT:ONCE A WEEK
     Route: 042
  18. SODIUM BICARBONATE [Suspect]
     Indication: DRUG USE FOR UNKNOWN INDICATION
     Dosage: TEXT:1 G
     Route: 065
  19. VITAMIN D [Suspect]
     Indication: DRUG USE FOR UNKNOWN INDICATION
     Dosage: TEXT:3 X WEEKLY
     Route: 065

REACTIONS (3)
  - ANAEMIA [None]
  - LARGE INTESTINAL ULCER [None]
  - THROMBOCYTOSIS [None]
